FAERS Safety Report 25832149 (Version 1)
Quarter: 2025Q3

REPORT INFORMATION
  Report Type: Spontaneous
  Country: SG (occurrence: SG)
  Receive Date: 20250922
  Receipt Date: 20250922
  Transmission Date: 20251021
  Serious: Yes (Other)
  Sender: GENMAB
  Company Number: SG-ABBVIE-6454217

PATIENT

DRUGS (1)
  1. EPKINLY [Suspect]
     Active Substance: EPCORITAMAB-BYSP
     Indication: Product used for unknown indication
     Route: 058
     Dates: end: 202508

REACTIONS (2)
  - Hepatic failure [Unknown]
  - Disease progression [Unknown]

NARRATIVE: CASE EVENT DATE: 20250801
